FAERS Safety Report 16708964 (Version 1)
Quarter: 2019Q3

REPORT INFORMATION
  Report Type: Spontaneous
  Country: LU (occurrence: LU)
  Receive Date: 20190816
  Receipt Date: 20190816
  Transmission Date: 20191004
  Serious: Yes (Other)
  Sender: FDA-Public Use
  Company Number: LU-TEVA-2019-LU-1092439

PATIENT
  Age: 55 Year
  Sex: Male
  Weight: 85 kg

DRUGS (16)
  1. OCTAGAM IMMUNE GLOBULIN (HUMAN) [Concomitant]
     Active Substance: HUMAN IMMUNOGLOBULIN G
  2. FLUDARA [Concomitant]
     Active Substance: FLUDARABINE PHOSPHATE
     Dosage: D1, J2 AND J3 OF EACH CURE, 42.5 MILLIGRAM
     Dates: start: 20171103, end: 20180321
  3. ACTOS 30 MG, COMPRIME [Concomitant]
  4. GLUCOPHAGE [Concomitant]
     Active Substance: METFORMIN HYDROCHLORIDE
  5. ENDOXAN [Concomitant]
     Active Substance: CYCLOPHOSPHAMIDE
     Dosage: D1, J2 AND J3 OF EACH CURE, 424.3 MILLIGRAM
     Dates: start: 20171103, end: 20180321
  6. PROLEUKIN [Suspect]
     Active Substance: ALDESLEUKIN
     Indication: PROGRESSIVE MULTIFOCAL LEUKOENCEPHALOPATHY
     Route: 058
     Dates: start: 201812, end: 201904
  7. LINAGLIPTINE [Concomitant]
     Active Substance: LINAGLIPTIN
  8. EUTHYROX [Concomitant]
     Active Substance: LEVOTHYROXINE SODIUM
  9. MEFLOQUINE [Suspect]
     Active Substance: MEFLOQUINE
     Indication: PROGRESSIVE MULTIFOCAL LEUKOENCEPHALOPATHY
     Route: 048
     Dates: start: 201810
  10. ATACAND [Concomitant]
     Active Substance: CANDESARTAN CILEXETIL
  11. MIRTAZAPINE. [Suspect]
     Active Substance: MIRTAZAPINE
     Indication: PROGRESSIVE MULTIFOCAL LEUKOENCEPHALOPATHY
     Route: 048
     Dates: start: 20181005
  12. VISTIDE [Suspect]
     Active Substance: CIDOFOVIR
     Indication: PROGRESSIVE MULTIFOCAL LEUKOENCEPHALOPATHY
     Route: 042
     Dates: start: 20181005
  13. NEXIAM [Concomitant]
     Active Substance: ESOMEPRAZOLE
  14. PROBENECIDE [Suspect]
     Active Substance: PROBENECID
     Indication: PROGRESSIVE MULTIFOCAL LEUKOENCEPHALOPATHY
     Route: 048
     Dates: start: 20181005
  15. MABTHERA [Concomitant]
     Active Substance: RITUXIMAB
     Dosage: J1 DE CHAQUE CURE, 637 MILLIGRAM
     Dates: start: 20171103, end: 20180319
  16. LANTUS [Concomitant]
     Active Substance: INSULIN GLARGINE

REACTIONS (1)
  - Desmoid tumour [Not Recovered/Not Resolved]

NARRATIVE: CASE EVENT DATE: 201903
